FAERS Safety Report 10610363 (Version 2)
Quarter: 2014Q4

REPORT INFORMATION
  Report Type: Report from Study
  Country: US (occurrence: US)
  Receive Date: 20141126
  Receipt Date: 20141126
  Transmission Date: 20150529
  Serious: Yes (Death)
  Sender: FDA-Public Use
  Company Number: US-PFIZER INC-2014322161

PATIENT
  Sex: Male

DRUGS (3)
  1. TEMSIROLIMUS [Suspect]
     Active Substance: TEMSIROLIMUS
     Indication: METASTATIC NEOPLASM
     Dosage: 25 MG, AS A 30-60 MINUTE INFUSION ON DAYS 1, 8, 15, AND 22
     Route: 042
  2. VINORELBINE [Suspect]
     Active Substance: VINORELBINE\VINORELBINE TARTRATE
     Indication: METASTATIC NEOPLASM
     Dosage: 25 MG/M2, AS A 5-10 MIN INFUSION ON DAYS 1 AND 15 EVERY 4 WEEKS
     Route: 042
  3. DIPHENHYDRAMINE [Concomitant]
     Active Substance: DIPHENHYDRAMINE
     Indication: PREMEDICATION
     Dosage: 25-50 MG 30 MIN PRIOR TO EACH DOSE OF TEMSIROLIMUS, REPEAT EVERY 28 DAYS
     Route: 042

REACTIONS (1)
  - Neutropenia [Fatal]
